FAERS Safety Report 9236030 (Version 1)
Quarter: 2013Q2

REPORT INFORMATION
  Report Type: Report from Study
  Country: US (occurrence: US)
  Receive Date: 20130417
  Receipt Date: 20130417
  Transmission Date: 20140414
  Serious: Yes (Hospitalization)
  Sender: FDA-Public Use
  Company Number: US-PURDUE-USA-2013-0101032

PATIENT
  Age: 57 Year
  Sex: Male
  Weight: 102.4 kg

DRUGS (3)
  1. OXYCONTIN (NDA 22-272) [Suspect]
     Indication: PRODUCT USED FOR UNKNOWN INDICATION
     Dosage: UNKNOWN
     Route: 048
  2. CURTISEN(OGX-011) [Suspect]
     Indication: PROSTATE CANCER
     Dosage: UNKNOWN
  3. DOCETAXEL [Suspect]
     Indication: PROSTATE CANCER
     Dosage: 7.5714 MG (159 MG ,1 IN 3 WK)
     Route: 042
     Dates: start: 20111026, end: 20120711

REACTIONS (1)
  - Faecaloma [Recovered/Resolved]
